FAERS Safety Report 9711026 (Version 2)
Quarter: 2013Q4

REPORT INFORMATION
  Report Type: Spontaneous
  Country: US (occurrence: US)
  Receive Date: 20131126
  Receipt Date: 20131126
  Transmission Date: 20140711
  Serious: No
  Sender: FDA-Public Use
  Company Number: US-BRISTOL-MYERS SQUIBB COMPANY-19034065

PATIENT
  Age: 58 Year
  Sex: Male

DRUGS (4)
  1. BYDUREON [Suspect]
     Indication: TYPE 2 DIABETES MELLITUS
     Dosage: EXENATIDE EXYENDED-RELEASE FOR INJECTABLE SUSPENSION
     Route: 058
  2. METFORMIN [Concomitant]
  3. LISINOPRIL [Concomitant]
  4. LEVEMIR [Concomitant]

REACTIONS (3)
  - Incorrect dose administered [Unknown]
  - Dry mouth [Unknown]
  - Product quality issue [Unknown]
